FAERS Safety Report 6649623 (Version 2)
Quarter: 2015Q4

REPORT INFORMATION
  Report Type: Spontaneous
  Country: GB (occurrence: GB)
  Receive Date: 20080527
  Receipt Date: 20151113
  Transmission Date: 20160305
  Serious: Yes (Other)
  Sender: FDA-Public Use
  Company Number: GB-BRISTOL-MYERS SQUIBB COMPANY-14202303

PATIENT
  Age: 41 Year
  Sex: Female
  Weight: 55 kg

DRUGS (4)
  1. MICRONOR [Interacting]
     Active Substance: NORETHINDRONE
     Indication: CONTRACEPTION
     Dosage: 1 DF, QD
     Route: 048
     Dates: start: 20071129
  2. EFAVIRENZ [Suspect]
     Active Substance: EFAVIRENZ
     Indication: PRODUCT USED FOR UNKNOWN INDICATION
     Dosage: 600 MG, QD
     Route: 048
     Dates: start: 20000801
  3. TRUVADA [Concomitant]
     Active Substance: EMTRICITABINE\TENOFOVIR DISOPROXIL FUMARATE
     Indication: PRODUCT USED FOR UNKNOWN INDICATION
     Route: 065
  4. LORATADINE. [Concomitant]
     Active Substance: LORATADINE
     Indication: ARTHROPOD BITE
     Dosage: 3 DF, UNK
     Route: 065
     Dates: start: 200804, end: 200804

REACTIONS (2)
  - Pregnancy on oral contraceptive [Unknown]
  - Inhibitory drug interaction [Unknown]
